FAERS Safety Report 7367065-9 (Version None)
Quarter: 2011Q1

REPORT INFORMATION
  Report Type: 
  Country: None (occurrence: None)
  Receive Date: 20110322
  Receipt Date: 20100608
  Transmission Date: 20110831
  Serious: Yes (Hospitalization, Other)
  Sender: FDA-Public Use
  Company Number: JP-ASTRAZENECA-2010SE16824

PATIENT
  Age: 64 Year
  Sex: Female

DRUGS (3)
  1. MEROPEN [Suspect]
     Indication: SEPSIS
     Route: 042
     Dates: start: 20100113, end: 20100117
  2. MAXIPIME [Suspect]
     Indication: SEPSIS
     Route: 042
     Dates: start: 20100117, end: 20100119
  3. VANCOMYCIN HYDROCHLORIDE [Suspect]
     Indication: SEPSIS
     Route: 042
     Dates: start: 20100112, end: 20100119

REACTIONS (2)
  - DEPRESSED LEVEL OF CONSCIOUSNESS [None]
  - OVERDOSE [None]
